FAERS Safety Report 23140584 (Version 1)
Quarter: 2023Q4

REPORT INFORMATION
  Report Type: Spontaneous
  Country: CN (occurrence: CN)
  Receive Date: 20231103
  Receipt Date: 20231103
  Transmission Date: 20240110
  Serious: Yes (Other)
  Sender: FDA-Public Use
  Company Number: None

PATIENT
  Age: 17 Year
  Sex: Female
  Weight: 42 kg

DRUGS (8)
  1. IFOSFAMIDE [Suspect]
     Active Substance: IFOSFAMIDE
     Indication: Malignant peritoneal neoplasm
     Dosage: 3G, ONE TIME IN ONE DAY, DILUTED WITH 500 ML OF 0.9% SODIUM CHLORIDE
     Route: 041
     Dates: start: 20230908, end: 20230911
  2. IFOSFAMIDE [Suspect]
     Active Substance: IFOSFAMIDE
     Indication: Gastrointestinal cancer metastatic
  3. IFOSFAMIDE [Suspect]
     Active Substance: IFOSFAMIDE
     Indication: Sarcoma metastatic
  4. SODIUM CHLORIDE [Suspect]
     Active Substance: SODIUM CHLORIDE
     Indication: Medication dilution
     Dosage: 500ML INJECTION, ONE TIME IN ONE DAY, USED TO DILUTE 3G OF IFOSFAMIDE
     Route: 041
     Dates: start: 20230908, end: 20230911
  5. SODIUM CHLORIDE [Suspect]
     Active Substance: SODIUM CHLORIDE
     Dosage: 750ML INJECTION, ONE TIME IN ONE DAY, USED TO DILUTE 140MG OF ETOPOSIDE
     Route: 041
     Dates: start: 20230908, end: 20230911
  6. ETOPOSIDE [Suspect]
     Active Substance: ETOPOSIDE
     Indication: Malignant peritoneal neoplasm
     Dosage: 140MG, ONE TIME IN ONE DAY, DILUTED WITH 750 ML OF 0.9% SODIUM CHLORIDE
     Route: 041
     Dates: start: 20230908, end: 20230911
  7. ETOPOSIDE [Suspect]
     Active Substance: ETOPOSIDE
     Indication: Gastrointestinal cancer metastatic
  8. ETOPOSIDE [Suspect]
     Active Substance: ETOPOSIDE
     Indication: Sarcoma metastatic

REACTIONS (5)
  - Epilepsy [Recovering/Resolving]
  - Tetany [Recovering/Resolving]
  - Tooth disorder [Recovering/Resolving]
  - Loss of consciousness [Recovered/Resolved]
  - Foaming at mouth [Recovered/Resolved]

NARRATIVE: CASE EVENT DATE: 20230911
